FAERS Safety Report 6419308-3 (Version None)
Quarter: 2009Q4

REPORT INFORMATION
  Report Type: 
  Country: None (occurrence: None)
  Receive Date: 20091029
  Receipt Date: 20091027
  Transmission Date: 20100525
  Serious: Yes (Other)
  Sender: FDA-Public Use
  Company Number: US-BRISTOL-MYERS SQUIBB COMPANY-14833131

PATIENT
  Age: 93 Year
  Sex: Male
  Weight: 75 kg

DRUGS (5)
  1. COUMADIN [Suspect]
  2. DETROL [Concomitant]
  3. NAMENDA [Concomitant]
  4. PRIMIDONE [Concomitant]
  5. ARICEPT [Concomitant]

REACTIONS (3)
  - HYPOAESTHESIA [None]
  - PRURITUS [None]
  - SKIN ULCER [None]
